FAERS Safety Report 17349106 (Version 1)
Quarter: 2020Q1

REPORT INFORMATION
  Report Type: Report from Study
  Country: US (occurrence: US)
  Receive Date: 20200129
  Receipt Date: 20200129
  Transmission Date: 20200409
  Serious: No
  Sender: FDA-Public Use
  Company Number: US-EXELIXIS-CABO-19025172

PATIENT
  Sex: Female

DRUGS (2)
  1. XGEVA [Concomitant]
     Active Substance: DENOSUMAB
  2. CABOMETYX [Suspect]
     Active Substance: CABOZANTINIB S-MALATE
     Indication: RENAL CANCER METASTATIC
     Dosage: 40 MG
     Dates: start: 201908, end: 20191201

REACTIONS (2)
  - Tooth abscess [Not Recovered/Not Resolved]
  - Thinking abnormal [Recovered/Resolved]
